FAERS Safety Report 7105003-4 (Version None)
Quarter: 2010Q4

REPORT INFORMATION
  Report Type: 
  Country: None (occurrence: None)
  Receive Date: 20101109
  Receipt Date: 20101022
  Transmission Date: 20110411
  Serious: Yes (Other)
  Sender: FDA-Public Use
  Company Number: 7024457

PATIENT
  Sex: Female

DRUGS (12)
  1. REBIF [Suspect]
     Indication: RELAPSING-REMITTING MULTIPLE SCLEROSIS
     Dosage: 22 MCG, 3 IN 1 WK, SUBCUTANEOUS
     Route: 058
  2. CITALOPRAM (CITALOPRAM) [Concomitant]
  3. CLONAZEPAM [Concomitant]
  4. DIMETHICONE (DIMETHICONE, ACTIVATED) [Concomitant]
  5. ESOMEPRAZOLE (ESOMERAZOLE) [Concomitant]
  6. CARBAMAZEPINE [Concomitant]
  7. CAPTOPRIL [Concomitant]
  8. PURAN T4 (LEVOTHYROXINE SODIUM) [Concomitant]
  9. BACLOFEN [Concomitant]
  10. SIMVASTATIN [Concomitant]
  11. TORSILAX (CARISOPRODOL) [Concomitant]
  12. RAPILAX (SODIUM PICOSULFATE) [Concomitant]

REACTIONS (2)
  - EPILEPSY [None]
  - INJECTION SITE ERYTHEMA [None]
